FAERS Safety Report 9417574 (Version 1)
Quarter: 2013Q3

REPORT INFORMATION
  Report Type: Spontaneous
  Country: US (occurrence: None)
  Receive Date: 20130722
  Receipt Date: 20130722
  Transmission Date: 20140515
  Serious: Yes (Hospitalization, Other)
  Sender: FDA-Public Use
  Company Number: None

PATIENT
  Age: 30 Year
  Sex: Female
  Weight: 69.4 kg

DRUGS (1)
  1. PARAGARD T380A [Suspect]
     Dates: start: 20110512, end: 20111004

REACTIONS (3)
  - Pregnancy with contraceptive device [None]
  - Device dislocation [None]
  - Maternal exposure during pregnancy [None]
